FAERS Safety Report 14879692 (Version 1)
Quarter: 2018Q2

REPORT INFORMATION
  Report Type: Spontaneous
  Country: US (occurrence: US)
  Receive Date: 20180425
  Receipt Date: 20180425
  Transmission Date: 20180711
  Serious: No
  Sender: FDA-Public Use
  Company Number: None

PATIENT
  Age: 82 Year
  Sex: Female
  Weight: 63.45 kg

DRUGS (1)
  1. NUCALA [Suspect]
     Active Substance: MEPOLIZUMAB
     Indication: ASTHMA
     Dosage: ?          OTHER FREQUENCY:MONTHLY;?
     Route: 058
     Dates: start: 20161130, end: 20180419

REACTIONS (4)
  - Accidental overdose [None]
  - Product packaging quantity issue [None]
  - Product reconstitution quality issue [None]
  - Product label issue [None]

NARRATIVE: CASE EVENT DATE: 20180419
